FAERS Safety Report 17289393 (Version 1)
Quarter: 2020Q1

REPORT INFORMATION
  Report Type: Spontaneous
  Country: US (occurrence: US)
  Receive Date: 20200120
  Receipt Date: 20200120
  Transmission Date: 20200409
  Serious: Yes (Hospitalization)
  Sender: FDA-Public Use
  Company Number: US-VIRTUS PHARMACEUTICALS, LLC-2020VTS00002

PATIENT
  Age: 53 Year
  Sex: Female

DRUGS (2)
  1. ALBUTEROL. [Suspect]
     Active Substance: ALBUTEROL
     Indication: ASTHMA
     Dosage: UNK
  2. ALBUTEROL. [Suspect]
     Active Substance: ALBUTEROL
     Dosage: STARTED ON CONTINUOUS NEBULIZATION TREATMENT

REACTIONS (2)
  - Respiratory failure [Unknown]
  - Stress cardiomyopathy [Unknown]
